FAERS Safety Report 6121636-6 (Version None)
Quarter: 2009Q1

REPORT INFORMATION
  Report Type: 
  Country: None (occurrence: None)
  Receive Date: 20090317
  Receipt Date: 20090313
  Transmission Date: 20090719
  Serious: Yes (Life-Threatening)
  Sender: FDA-Public Use
  Company Number: PHHY2009NL09423

PATIENT
  Age: 14 Year
  Sex: Female

DRUGS (3)
  1. CARBAMAZEPINE [Suspect]
     Dosage: UNK
  2. FENYTOIN [Suspect]
     Dosage: UNK
  3. PARACETAMOL [Suspect]
     Dosage: UNK

REACTIONS (2)
  - COMA [None]
  - SUICIDE ATTEMPT [None]
